FAERS Safety Report 6998105-4 (Version None)
Quarter: 2010Q3

REPORT INFORMATION
  Report Type: 
  Country: None (occurrence: None)
  Receive Date: 20100920
  Receipt Date: 20090901
  Transmission Date: 20110219
  Serious: Yes (Other)
  Sender: FDA-Public Use
  Company Number: US-ASTRAZENECA-2009UW09068

PATIENT
  Age: 17919 Day
  Sex: Female

DRUGS (2)
  1. SEROQUEL [Suspect]
     Indication: INSOMNIA
     Dosage: 25-300MG
     Route: 048
     Dates: start: 20060101
  2. ZYPREXA [Concomitant]
     Dosage: 10 MG -15 MG
     Dates: start: 20040801, end: 20050101

REACTIONS (1)
  - PANCREATITIS ACUTE [None]
